FAERS Safety Report 18876657 (Version 2)
Quarter: 2022Q3

REPORT INFORMATION
  Report Type: Spontaneous
  Country: ES (occurrence: ES)
  Receive Date: 20210211
  Receipt Date: 20220929
  Transmission Date: 20221027
  Serious: Yes (Other)
  Sender: FDA-Public Use
  Company Number: None

PATIENT
  Age: 25 Year
  Sex: Male

DRUGS (2)
  1. CIPROFLOXACIN [Suspect]
     Active Substance: CIPROFLOXACIN
     Indication: Abdominal abscess
     Dosage: 500 MILLIGRAM DAILY; CIPROFLOXACINO 250MG, ONE TABLET AT BREAKFAST AND ANOTHER AT DINNER FOR 4 WEEKS
     Route: 048
     Dates: start: 20200601, end: 20200626
  2. METRONIDAZOLE [Suspect]
     Active Substance: METRONIDAZOLE
     Indication: Abdominal abscess
     Dosage: METRONIDAZOL (1966A)
     Route: 048
     Dates: start: 20200601, end: 20200626

REACTIONS (1)
  - Pancreatitis acute [Recovered/Resolved]

NARRATIVE: CASE EVENT DATE: 20200630
